FAERS Safety Report 15784512 (Version 3)
Quarter: 2019Q1

REPORT INFORMATION
  Report Type: Report from Study
  Country: None (occurrence: ES)
  Receive Date: 20190103
  Receipt Date: 20190128
  Transmission Date: 20190417
  Serious: Yes (Death)
  Sender: FDA-Public Use
  Company Number: ES-ABBVIE-19S-144-2610377-00

PATIENT
  Age: 62 Year
  Sex: Female

DRUGS (2)
  1. DUODOPA [Suspect]
     Active Substance: CARBIDOPA\LEVODOPA
     Route: 050
     Dates: start: 201805
  2. DUODOPA [Suspect]
     Active Substance: CARBIDOPA\LEVODOPA
     Indication: PARKINSON^S DISEASE
     Route: 050
     Dates: start: 20140508, end: 20180419

REACTIONS (5)
  - Dysphagia [Fatal]
  - Metastases to liver [Fatal]
  - Parkinson^s disease [Not Recovered/Not Resolved]
  - Metastases to bone [Fatal]
  - Choking [Fatal]

NARRATIVE: CASE EVENT DATE: 2018
